FAERS Safety Report 7338320-3 (Version None)
Quarter: 2011Q1

REPORT INFORMATION
  Report Type: 
  Country: None (occurrence: None)
  Receive Date: 20110224
  Receipt Date: 20110214
  Transmission Date: 20110831
  Serious: Yes (Death, Hospitalization)
  Sender: FDA-Public Use
  Company Number: TAJPN-11-0120

PATIENT
  Age: 42 Year
  Sex: Female
  Weight: 60 kg

DRUGS (1)
  1. ABRAXANE [Suspect]
     Indication: BREAST CANCER METASTATIC
     Dosage: 200 MG
     Dates: start: 20110205, end: 20110205

REACTIONS (9)
  - ASPARTATE AMINOTRANSFERASE INCREASED [None]
  - METASTASES TO LIVER [None]
  - PLATELET COUNT DECREASED [None]
  - NEOPLASM MALIGNANT [None]
  - BREAST CANCER FEMALE [None]
  - WHITE BLOOD CELL COUNT DECREASED [None]
  - NEUTROPHIL COUNT DECREASED [None]
  - SKIN DISORDER [None]
  - DISSEMINATED INTRAVASCULAR COAGULATION [None]
